FAERS Safety Report 8778655 (Version 3)
Quarter: 2012Q4

REPORT INFORMATION
  Report Type: 
  Country: US (occurrence: US)
  Receive Date: 20120912
  Receipt Date: 20121119
  Transmission Date: 20130627
  Serious: Yes (Death)
  Sender: FDA-Public Use
  Company Number: US-PFIZER INC-2012221047

PATIENT
  Age: 78 Year
  Sex: Female

DRUGS (1)
  1. SUTENT [Suspect]
     Indication: METASTATIC CARCINOID TUMOUR
     Dosage: 37.5 mg, 1x/day (3 capsules of 12.5mg)
     Route: 048
     Dates: start: 20120229

REACTIONS (2)
  - Disease progression [Fatal]
  - Metastatic carcinoid tumour [Fatal]
